FAERS Safety Report 24156471 (Version 1)
Quarter: 2024Q3

REPORT INFORMATION
  Report Type: Spontaneous
  Country: US (occurrence: US)
  Receive Date: 20240731
  Receipt Date: 20240731
  Transmission Date: 20241017
  Serious: Yes (Other)
  Sender: TORRENT
  Company Number: US-TORRENT-00013692

PATIENT
  Age: 28 Year
  Sex: Female

DRUGS (1)
  1. MINOCYCLINE [Suspect]
     Active Substance: MINOCYCLINE HYDROCHLORIDE
     Indication: Product used for unknown indication
     Dosage: UNKNOWN
     Route: 065
     Dates: start: 20240716

REACTIONS (6)
  - Urticaria [Unknown]
  - Feelings of worthlessness [Unknown]
  - Discomfort [Unknown]
  - Dyspnoea [Unknown]
  - Syncope [Unknown]
  - Blister [Unknown]
